FAERS Safety Report 9550162 (Version 2)
Quarter: 2013Q3

REPORT INFORMATION
  Report Type: Report from Study
  Country: IT (occurrence: IT)
  Receive Date: 20130924
  Receipt Date: 20130924
  Transmission Date: 20140515
  Serious: Yes (Hospitalization, Other)
  Sender: FDA-Public Use
  Company Number: PHHY2013IT098999

PATIENT
  Age: 57 Year
  Sex: Male
  Weight: 90 kg

DRUGS (2)
  1. FTY 720 [Suspect]
     Indication: MULTIPLE SCLEROSIS
     Dosage: 0.5 MG, QD
     Route: 048
     Dates: start: 20130613, end: 20130813
  2. CORTICOSTEROIDS [Concomitant]
     Dosage: 1 G, UNK
     Dates: start: 201306

REACTIONS (2)
  - Herpes zoster oticus [Recovered/Resolved]
  - Post herpetic neuralgia [Unknown]
